FAERS Safety Report 4622124-6 (Version None)
Quarter: 2005Q1

REPORT INFORMATION
  Report Type: 
  Country: None (occurrence: None)
  Receive Date: 20050328
  Receipt Date: 20050318
  Transmission Date: 20050727
  Serious: Yes (Hospitalization)
  Sender: FDA-Public Use
  Company Number: 2005-03-0227

PATIENT
  Age: 54 Year
  Sex: Female
  Weight: 68 kg

DRUGS (4)
  1. NASONEX [Suspect]
     Dosage: 2PUFFS QD NASAL SPRAY
     Dates: start: 20040312, end: 20040410
  2. AGREAL [Concomitant]
  3. OGAST [Concomitant]
  4. ZYRTEC [Concomitant]

REACTIONS (4)
  - ADRENAL CORTICAL INSUFFICIENCY [None]
  - BLOOD POTASSIUM ABNORMAL [None]
  - MALAISE [None]
  - RENAL TUBULAR ACIDOSIS [None]
